FAERS Safety Report 21973447 (Version 1)
Quarter: 2023Q1

REPORT INFORMATION
  Report Type: Spontaneous
  Country: US (occurrence: None)
  Receive Date: 20230208
  Receipt Date: 20230208
  Transmission Date: 20230418
  Serious: No
  Sender: FDA-Public Use
  Company Number: None

PATIENT

DRUGS (1)
  1. HERBALS [Suspect]
     Active Substance: HERBALS

REACTIONS (11)
  - Product contamination microbial [None]
  - Product label counterfeit [None]
  - Product lot number issue [None]
  - Metal poisoning [None]
  - Brief resolved unexplained event [None]
  - Legal problem [None]
  - Poisoning [None]
  - Vomiting [None]
  - Fall [None]
  - Face injury [None]
  - Ligament sprain [None]
